FAERS Safety Report 5630013-3 (Version None)
Quarter: 2008Q1

REPORT INFORMATION
  Report Type: 
  Country: None (occurrence: None)
  Receive Date: 20080218
  Receipt Date: 20080208
  Transmission Date: 20080703
  Serious: Yes (Hospitalization)
  Sender: FDA-Public Use
  Company Number: PHEH2007US13775

PATIENT
  Age: 89 Year
  Sex: Male

DRUGS (9)
  1. COUMADIN [Suspect]
     Dosage: 4 MG, UNK
  2. PROSCAR [Concomitant]
  3. FLOMAX [Concomitant]
  4. DIOVAN [Suspect]
     Indication: HYPERTENSION
     Dosage: 160 MG, BID
  5. PROTONIX [Concomitant]
  6. FINASTERIDE [Concomitant]
  7. FLUTICASONE PROPIONATE [Concomitant]
  8. LIPITOR [Concomitant]
  9. NORVASC [Concomitant]

REACTIONS (8)
  - BLOOD URINE PRESENT [None]
  - CHROMATURIA [None]
  - CONTUSION [None]
  - DRUG DISPENSING ERROR [None]
  - HAEMORRHAGE [None]
  - OEDEMA PERIPHERAL [None]
  - SWOLLEN TONGUE [None]
  - TONGUE BLACK HAIRY [None]
